FAERS Safety Report 6760142-2 (Version None)
Quarter: 2010Q2

REPORT INFORMATION
  Report Type: 
  Country: None (occurrence: None)
  Receive Date: 20100608
  Receipt Date: 20100525
  Transmission Date: 20101027
  Serious: Yes (Other)
  Sender: FDA-Public Use
  Company Number: FR-BRISTOL-MYERS SQUIBB COMPANY-15137144

PATIENT
  Age: 61 Year
  Sex: Male

DRUGS (1)
  1. APROVEL [Suspect]
     Route: 065
     Dates: start: 20030101

REACTIONS (3)
  - LOSS OF CONSCIOUSNESS [None]
  - MUSCLE SPASMS [None]
  - PAIN IN EXTREMITY [None]
